FAERS Safety Report 4818876-2 (Version None)
Quarter: 2005Q4

REPORT INFORMATION
  Report Type: 
  Country: None (occurrence: None)
  Receive Date: 20051101
  Receipt Date: 20051018
  Transmission Date: 20060501
  Serious: Yes (Life-Threatening)
  Sender: FDA-Public Use
  Company Number: 02100-JPN-05-0508

PATIENT
  Age: 86 Year
  Sex: Female

DRUGS (1)
  1. CILOSTAZOL [Suspect]
     Indication: CEREBRAL INFARCTION
     Dosage: 200 MG
     Route: 048
     Dates: start: 20050815, end: 20050820

REACTIONS (2)
  - ACUTE PRERENAL FAILURE [None]
  - LOW CARDIAC OUTPUT SYNDROME [None]
